FAERS Safety Report 6070171-2 (Version None)
Quarter: 2009Q1

REPORT INFORMATION
  Report Type: 
  Country: None (occurrence: None)
  Receive Date: 20090209
  Receipt Date: 20090203
  Transmission Date: 20090719
  Serious: Yes (Death)
  Sender: FDA-Public Use
  Company Number: JP-ASTRAZENECA-2009AP00939

PATIENT
  Age: 70 Year
  Sex: Female

DRUGS (8)
  1. ARIMIDEX [Suspect]
     Indication: BREAST CANCER
     Route: 048
     Dates: start: 20090115
  2. VITAMEDIN [Concomitant]
     Route: 048
     Dates: start: 20080825
  3. TRANSAMIN [Concomitant]
     Route: 048
     Dates: start: 20080825
  4. VITAMIN C AND PREPARATIONS [Concomitant]
     Route: 048
  5. HYALEIN [Concomitant]
     Dosage: DOSE UNKNOWN
     Route: 047
  6. LIVOSTIN [Concomitant]
     Dosage: DOSE UNKNOWN
     Route: 047
  7. AGENTS USED FOR COMMON COLD [Concomitant]
     Dosage: DOSE UNKNOWN
     Route: 048
  8. FLAVITAN [Concomitant]
     Dosage: DOSE UNKNOWN
     Route: 031

REACTIONS (1)
  - SUDDEN DEATH [None]
